FAERS Safety Report 15555191 (Version 1)
Quarter: 2018Q4

REPORT INFORMATION
  Report Type: Spontaneous
  Country: US (occurrence: US)
  Receive Date: 20181026
  Receipt Date: 20181026
  Transmission Date: 20190205
  Serious: Yes (Other)
  Sender: FDA-Public Use
  Company Number: None

PATIENT
  Age: 21 Year
  Sex: Female
  Weight: 70.8 kg

DRUGS (10)
  1. MORPHINE [Suspect]
     Active Substance: MORPHINE
     Indication: PROCEDURAL PAIN
     Dates: start: 20181023, end: 20181023
  2. KETOROLAC [Concomitant]
     Active Substance: KETOROLAC\KETOROLAC TROMETHAMINE
     Dates: start: 20181023, end: 20181023
  3. FAMOTIDINE. [Concomitant]
     Active Substance: FAMOTIDINE
     Dates: start: 20181023, end: 20181023
  4. LACTATED RINGERS SOLUTION [Concomitant]
     Active Substance: CALCIUM CHLORIDE\POTASSIUM CHLORIDE\SODIUM CHLORIDE\SODIUM LACTATE
     Dates: start: 20181023, end: 20181023
  5. ONDANSETRON [Concomitant]
     Active Substance: ONDANSETRON
     Dates: start: 20181023, end: 20181023
  6. OXYTOCIN. [Concomitant]
     Active Substance: OXYTOCIN
     Dates: start: 20181023, end: 20181023
  7. CITRIC ACID-SODIUM CITRATE [Concomitant]
     Dates: start: 20181023, end: 20181023
  8. CEFAZOLIN [Concomitant]
     Active Substance: CEFAZOLIN
     Dates: start: 20181023, end: 20181023
  9. PROMETHAZINE [Concomitant]
     Active Substance: PROMETHAZINE\PROMETHAZINE HYDROCHLORIDE
     Dates: start: 20181023, end: 20181023
  10. EPHEDRINE. [Concomitant]
     Active Substance: EPHEDRINE
     Dates: start: 20181023, end: 20181023

REACTIONS (4)
  - Vomiting [None]
  - Bradycardia [None]
  - Nausea [None]
  - Hypothermia [None]

NARRATIVE: CASE EVENT DATE: 20181023
